FAERS Safety Report 8934117 (Version 1)
Quarter: 2012Q4

REPORT INFORMATION
  Report Type: 
  Country: US (occurrence: US)
  Receive Date: 20121129
  Receipt Date: 20121129
  Transmission Date: 20130627
  Serious: No
  Sender: FDA-Public Use
  Company Number: US-GLAXOSMITHKLINE-A0967868A

PATIENT
  Age: 16 Year
  Sex: Male

DRUGS (3)
  1. WELLBUTRIN SR [Suspect]
     Indication: DEPRESSION
     Dosage: 100MG Per day
     Route: 048
     Dates: start: 20120131, end: 20120208
  2. GROWTH HORMONE [Concomitant]
  3. DEXTROAMPHETAMINE [Concomitant]

REACTIONS (3)
  - Hair colour changes [Not Recovered/Not Resolved]
  - Irritability [Unknown]
  - Agitation [Unknown]
